FAERS Safety Report 10086997 (Version 2)
Quarter: 2014Q2

REPORT INFORMATION
  Report Type: Spontaneous
  Country: SE (occurrence: SE)
  Receive Date: 20140418
  Receipt Date: 20140605
  Transmission Date: 20141212
  Serious: Yes (Other)
  Sender: FDA-Public Use
  Company Number: CHPA2014SE005417

PATIENT
  Age: 54 Year
  Sex: Male

DRUGS (1)
  1. NICOTINELL GUM [Suspect]
     Indication: SMOKING CESSATION THERAPY
     Dosage: 15 DF, DAILY
     Dates: start: 201010

REACTIONS (1)
  - Drug dependence [Not Recovered/Not Resolved]
